FAERS Safety Report 13078173 (Version 1)
Quarter: 2017Q1

REPORT INFORMATION
  Report Type: Spontaneous
  Country: DE (occurrence: DE)
  Receive Date: 20170102
  Receipt Date: 20170102
  Transmission Date: 20170428
  Serious: Yes (Congenital Anomaly, Other)
  Sender: FDA-Public Use
  Company Number: DE-ACCORD-046985

PATIENT
  Age: 1 Day
  Sex: Male
  Weight: 2.76 kg

DRUGS (3)
  1. MAMA A-Z [Concomitant]
     Indication: PROPHYLAXIS OF NEURAL TUBE DEFECT
     Dosage: 0.4 (MG/D)
     Route: 064
     Dates: start: 20151210, end: 20160809
  2. QUETIAPINE. [Suspect]
     Active Substance: QUETIAPINE
     Indication: BORDERLINE PERSONALITY DISORDER
     Dosage: 200-0-300 MG/D
     Route: 064
     Dates: start: 20151210, end: 20160809
  3. QUETIAPINE AUROBINDO [Suspect]
     Active Substance: QUETIAPINE
     Indication: BORDERLINE PERSONALITY DISORDER
     Dosage: 100 MG/D/BY NIGHT
     Route: 064
     Dates: start: 20151210, end: 20160809

REACTIONS (3)
  - Haemangioma congenital [Not Recovered/Not Resolved]
  - Respiratory disorder neonatal [Recovered/Resolved]
  - Foetal exposure during pregnancy [Unknown]

NARRATIVE: CASE EVENT DATE: 20160808
